FAERS Safety Report 20974423 (Version 1)
Quarter: 2022Q2

REPORT INFORMATION
  Report Type: Spontaneous
  Country: JP (occurrence: JP)
  Receive Date: 20220617
  Receipt Date: 20220617
  Transmission Date: 20220721
  Serious: Yes (Other)
  Sender: FDA-Public Use
  Company Number: JP-SA-SAC20220510002106

PATIENT
  Sex: Male

DRUGS (1)
  1. OXALIPLATIN [Suspect]
     Active Substance: OXALIPLATIN
     Indication: Gastric cancer
     Dosage: UNK
     Dates: end: 20220330

REACTIONS (2)
  - Spinal compression fracture [Not Recovered/Not Resolved]
  - Vascular pain [Not Recovered/Not Resolved]

NARRATIVE: CASE EVENT DATE: 20220330
